FAERS Safety Report 6387438-0 (Version None)
Quarter: 2009Q3

REPORT INFORMATION
  Report Type: 
  Country: None (occurrence: None)
  Receive Date: 20090930
  Receipt Date: 20090916
  Transmission Date: 20100115
  Serious: Yes (Death)
  Sender: FDA-Public Use
  Company Number: 007576

PATIENT
  Age: 42 Year
  Sex: Male

DRUGS (9)
  1. SAMSCA [Suspect]
     Indication: HYPONATRAEMIA
     Dosage: 15 MG, DAILY DOSE, ORAL
     Route: 048
     Dates: start: 20090827, end: 20090904
  2. DIGOXIN [Concomitant]
  3. POTASSIUM CHLORIDE [Concomitant]
  4. BUMETANIDE [Concomitant]
  5. SIMVASTATIN [Concomitant]
  6. ZOLOFT [Concomitant]
  7. DOBUTAMINE (DOBUTAMINE) [Concomitant]
  8. METOLAZONE [Concomitant]
  9. XANAX USA (ALPRAZOLAM) [Concomitant]

REACTIONS (1)
  - SUDDEN CARDIAC DEATH [None]
